FAERS Safety Report 12609037 (Version 2)
Quarter: 2016Q3

REPORT INFORMATION
  Report Type: Spontaneous
  Country: JP (occurrence: JP)
  Receive Date: 20160731
  Receipt Date: 20160805
  Transmission Date: 20161109
  Serious: Yes (Other)
  Sender: FDA-Public Use
  Company Number: PHJP2016JP021369

PATIENT
  Age: 55 Year
  Sex: Male

DRUGS (2)
  1. NEORAL [Suspect]
     Active Substance: CYCLOSPORINE
     Indication: RHEUMATIC DISORDER
  2. NEORAL [Suspect]
     Active Substance: CYCLOSPORINE
     Indication: INTERSTITIAL LUNG DISEASE
     Dosage: 20 MG, QD
     Route: 048
     Dates: start: 20150521

REACTIONS (5)
  - Haemorrhagic diathesis [Recovering/Resolving]
  - Haemoptysis [Recovering/Resolving]
  - Off label use [Unknown]
  - Internal haemorrhage [Recovering/Resolving]
  - Epistaxis [Recovering/Resolving]
